FAERS Safety Report 8215393-7 (Version None)
Quarter: 2012Q1

REPORT INFORMATION
  Report Type: 
  Country: None (occurrence: None)
  Receive Date: 20120316
  Receipt Date: 20120307
  Transmission Date: 20120608
  Serious: Yes (Other)
  Sender: FDA-Public Use
  Company Number: FR-PFIZER INC-2012065772

PATIENT
  Age: 33 Year
  Sex: Female

DRUGS (1)
  1. FLUCONAZOLE [Suspect]
     Dosage: UNK
     Route: 048
     Dates: start: 20110701

REACTIONS (4)
  - PRURITUS [None]
  - MOUTH ULCERATION [None]
  - PYREXIA [None]
  - ERYTHEMA [None]
